FAERS Safety Report 4960220-4 (Version None)
Quarter: 2006Q1

REPORT INFORMATION
  Report Type: 
  Country: None (occurrence: None)
  Receive Date: 20060328
  Receipt Date: 20060315
  Transmission Date: 20060701
  Serious: Yes (Other)
  Sender: FDA-Public Use
  Company Number: 2006003436

PATIENT
  Age: 59 Year
  Sex: Female

DRUGS (3)
  1. NARDIL [Suspect]
     Indication: ILL-DEFINED DISORDER
     Dosage: 60 MG (15 MG, 4 IN 1 D)
  2. CLONAZEPAM [Concomitant]
  3. ALPRAZOLAM [Concomitant]

REACTIONS (4)
  - INCORRECT DOSE ADMINISTERED [None]
  - PANIC ATTACK [None]
  - TREATMENT NONCOMPLIANCE [None]
  - WEIGHT INCREASED [None]
